FAERS Safety Report 13458041 (Version 3)
Quarter: 2017Q2

REPORT INFORMATION
  Report Type: Report from Study
  Country: GB (occurrence: GB)
  Receive Date: 20170419
  Receipt Date: 20170515
  Transmission Date: 20170830
  Serious: Yes (Hospitalization)
  Sender: FDA-Public Use
  Company Number: GB-EMD SERONO-8153463

PATIENT
  Age: 13 Year
  Sex: Female

DRUGS (1)
  1. SAIZEN [Suspect]
     Active Substance: SOMATROPIN
     Indication: GROWTH HORMONE DEFICIENCY
     Dates: start: 20160909

REACTIONS (2)
  - Limb deformity [Unknown]
  - Drug dose omission [Unknown]

NARRATIVE: CASE EVENT DATE: 201704
